FAERS Safety Report 9527751 (Version 1)
Quarter: 2013Q3

REPORT INFORMATION
  Report Type: Spontaneous
  Country: US (occurrence: None)
  Receive Date: 20130913
  Receipt Date: 20130913
  Transmission Date: 20140515
  Serious: Yes (Hospitalization)
  Sender: FDA-Public Use
  Company Number: CIO13052493

PATIENT
  Age: 56 Year
  Sex: Female

DRUGS (4)
  1. PEPTO-BISMOL [Suspect]
     Indication: GASTROINTESTINAL DISORDER
     Dosage: 3 TIMES A DAY FOR  SEVERAL WEEKS
     Route: 048
  2. ESZOPICLONE (ESZOPICLONE) [Concomitant]
  3. QUETIAPINE (QUETIAPINE) [Concomitant]
  4. REMIFEMIN./01456805/(CIMICIFUGA RACEMOSA ROOT) [Concomitant]

REACTIONS (22)
  - Neurotoxicity [None]
  - Confusional state [None]
  - Myoclonus [None]
  - Tremor [None]
  - Gait disturbance [None]
  - Hallucination, visual [None]
  - Disturbance in attention [None]
  - Cognitive disorder [None]
  - Disturbance in attention [None]
  - Disorientation [None]
  - Hypertonia [None]
  - Hyperreflexia [None]
  - Extensor plantar response [None]
  - Slow speech [None]
  - Ataxia [None]
  - Encephalopathy [None]
  - Intention tremor [None]
  - Drug screen positive [None]
  - Drug level increased [None]
  - Somnolence [None]
  - Muscle rigidity [None]
  - Drug administration error [None]
